FAERS Safety Report 8888544 (Version 1)
Quarter: 2012Q4

REPORT INFORMATION
  Report Type: 
  Country: FR (occurrence: FR)
  Receive Date: 20121106
  Receipt Date: 20121106
  Transmission Date: 20130627
  Serious: Yes (Hospitalization)
  Sender: FDA-Public Use
  Company Number: FR-EISAI INC-E3810-06028-SPO-FR

PATIENT
  Age: 85 Year
  Sex: Male

DRUGS (10)
  1. PARIET (RABEPRAZOLE) [Suspect]
     Route: 048
     Dates: end: 20120803
  2. PLAVIX [Concomitant]
     Route: 065
  3. DIAMICRON [Concomitant]
     Route: 065
  4. LASILIX [Concomitant]
     Route: 065
  5. ALDACTONE [Concomitant]
     Route: 065
  6. CORDARONE [Concomitant]
     Route: 065
  7. COVERSYL [Concomitant]
     Route: 065
  8. SERESTA [Concomitant]
     Route: 065
  9. ZOPICLONE [Concomitant]
     Route: 065
  10. FORLAX [Concomitant]
     Route: 065

REACTIONS (1)
  - Hyponatraemia [Recovering/Resolving]
